FAERS Safety Report 6596881-6 (Version None)
Quarter: 2010Q1

REPORT INFORMATION
  Report Type: 
  Country: None (occurrence: None)
  Receive Date: 20100222
  Receipt Date: 20100222
  Transmission Date: 20100710
  Serious: Yes (Life-Threatening, Hospitalization, Disabling, Other)
  Sender: FDA-Public Use
  Company Number: None

PATIENT
  Age: 25 Year
  Sex: Female
  Weight: 43.0917 kg

DRUGS (2)
  1. CYMBALTA [Suspect]
     Dosage: 20MG 1 A DAY
     Dates: start: 20080401, end: 20090801
  2. DULOXETINE HYDROCHLORIDE [Suspect]
     Dosage: 30MGS 1 A DAY
     Dates: start: 20080401, end: 20090801

REACTIONS (13)
  - ANXIETY [None]
  - EMOTIONAL DISORDER [None]
  - FEELING ABNORMAL [None]
  - FIBROMYALGIA [None]
  - HEADACHE [None]
  - HYPERHIDROSIS [None]
  - HYPOAESTHESIA [None]
  - NERVOUS SYSTEM DISORDER [None]
  - NEUROPATHY PERIPHERAL [None]
  - PAIN [None]
  - PANIC ATTACK [None]
  - PARAESTHESIA [None]
  - SUICIDAL IDEATION [None]
